FAERS Safety Report 4367719-2 (Version None)
Quarter: 2004Q2

REPORT INFORMATION
  Report Type: 
  Country: None (occurrence: None)
  Receive Date: 20040601
  Receipt Date: 20040519
  Transmission Date: 20050107
  Serious: Yes (Other)
  Sender: FDA-Public Use
  Company Number: GB-JNJFOC-20040504633

PATIENT
  Age: 20 Year
  Sex: Male

DRUGS (8)
  1. HALOPERIDOL [Suspect]
     Indication: SCHIZOPHRENIA
     Route: 049
  2. CLOZARIL [Suspect]
     Indication: SCHIZOPHRENIA
     Dosage: 500 TO 450 MG/DAY
     Route: 049
  3. PROCYCLIDINE HYDROCHLORIDE 2MG TAB [Concomitant]
     Indication: EXTRAPYRAMIDAL DISORDER
     Route: 049
  4. SERTRALINE [Concomitant]
     Indication: DEPRESSION
     Route: 049
  5. DIAZEPAM [Concomitant]
     Indication: ANXIETY
     Route: 049
  6. CO-PROXAMOL [Concomitant]
     Route: 049
  7. CO-PROXAMOL [Concomitant]
     Indication: MUSCULOSKELETAL PAIN
     Route: 049
  8. DICLOFENAC [Concomitant]
     Indication: MUSCULOSKELETAL PAIN
     Route: 049

REACTIONS (4)
  - DRUG INTERACTION [None]
  - LEUKOCYTOSIS [None]
  - TACHYCARDIA [None]
  - THROMBOCYTHAEMIA [None]
